FAERS Safety Report 8839115 (Version 1)
Quarter: 2012Q4

REPORT INFORMATION
  Report Type: Spontaneous
  Country: US (occurrence: None)
  Receive Date: 20121011
  Receipt Date: 20121011
  Transmission Date: 20130627
  Serious: Yes (Life-Threatening, Hospitalization, Disabling, Other)
  Sender: FDA-Public Use
  Company Number: None

PATIENT
  Age: 46 Year
  Sex: Female
  Weight: 77.11 kg

DRUGS (1)
  1. ACETAMINOPHEN [Suspect]
     Indication: HEADACHE
     Dosage: 2 caplets every 6 hours po
     Route: 048
     Dates: start: 20121008, end: 20121008

REACTIONS (4)
  - Dizziness [None]
  - Nausea [None]
  - Abdominal pain upper [None]
  - Vomiting [None]
